FAERS Safety Report 7013705-3 (Version None)
Quarter: 2010Q3

REPORT INFORMATION
  Report Type: 
  Country: None (occurrence: None)
  Receive Date: 20100924
  Receipt Date: 20100824
  Transmission Date: 20110219
  Serious: Yes (Hospitalization)
  Sender: FDA-Public Use
  Company Number: US-TEVA-249295USA

PATIENT
  Sex: Female
  Weight: 129 kg

DRUGS (1)
  1. WARFARIN SODIUM [Suspect]
     Indication: CEREBROVASCULAR ACCIDENT PROPHYLAXIS
     Route: 048
     Dates: start: 20060622, end: 20070102

REACTIONS (2)
  - HAEMOGLOBIN DECREASED [None]
  - MICROCYTIC ANAEMIA [None]
